FAERS Safety Report 4970599-5 (Version None)
Quarter: 2006Q2

REPORT INFORMATION
  Report Type: 
  Country: None (occurrence: None)
  Receive Date: 20060412
  Receipt Date: 20050421
  Transmission Date: 20061013
  Serious: Yes (Hospitalization, Other)
  Sender: FDA-Public Use
  Company Number: US-MERCK-0603USA00269

PATIENT
  Age: 42 Year
  Sex: Female
  Weight: 79 kg

DRUGS (2)
  1. VIOXX [Suspect]
     Indication: NECK PAIN
     Route: 048
     Dates: start: 20000801, end: 20040101
  2. TYLENOL (CAPLET) [Concomitant]
     Route: 065

REACTIONS (12)
  - CHEST PAIN [None]
  - CORONARY ARTERY DISEASE [None]
  - DEPRESSION [None]
  - DIPLOPIA [None]
  - DIZZINESS [None]
  - DYSPNOEA [None]
  - HEADACHE [None]
  - MYOCARDIAL INFARCTION [None]
  - SKIN DISORDER [None]
  - TEMPERATURE INTOLERANCE [None]
  - THROMBOTIC STROKE [None]
  - VISUAL ACUITY REDUCED [None]
